FAERS Safety Report 4576168-3 (Version None)
Quarter: 2005Q1

REPORT INFORMATION
  Report Type: 
  Country: None (occurrence: None)
  Receive Date: 20050204
  Receipt Date: 20050124
  Transmission Date: 20050727
  Serious: Yes (Hospitalization)
  Sender: FDA-Public Use
  Company Number: 2005015400

PATIENT
  Age: 81 Year
  Sex: Male

DRUGS (4)
  1. SOLU-MEDROL [Suspect]
     Indication: ILL-DEFINED DISORDER
     Dosage: 80 MG (DAILY INTERVAL: EVERY
     Dates: start: 20041104, end: 20041108
  2. HEPARIN SODIUM [Suspect]
     Indication: ILL-DEFINED DISORDER
     Dosage: IN-
     Dates: start: 20041105, end: 20041106
  3. ACETYLSALICYLATE LYSINE [Suspect]
     Indication: ILL-DEFINED DISORDER
     Dosage: 75 MG (DAILY INTERVAL: EVERY
     Dates: end: 20041107
  4. ENOXAPARIN SODIUM [Suspect]
     Indication: ILL-DEFINED DISORDER
     Dosage: 1 DOSE FORM
     Dates: start: 20041104, end: 20041105

REACTIONS (4)
  - ABDOMINAL HAEMATOMA [None]
  - DRUG INTERACTION [None]
  - KAOLIN CEPHALIN CLOTTING TIME PROLONGED [None]
  - RENAL FAILURE [None]
